FAERS Safety Report 7707871-1 (Version None)
Quarter: 2011Q3

REPORT INFORMATION
  Report Type: 
  Country: None (occurrence: None)
  Receive Date: 20110824
  Receipt Date: 20110810
  Transmission Date: 20111222
  Serious: Yes (Hospitalization)
  Sender: FDA-Public Use
  Company Number: US-ELI_LILLY_AND_COMPANY-US201106004735

PATIENT
  Sex: Female

DRUGS (3)
  1. FORTEO [Suspect]
     Indication: OSTEOPOROSIS
     Dosage: 20 UG, QD
     Dates: start: 20110607
  2. FORTEO [Suspect]
     Dosage: 20 UG, QD
  3. FORTEO [Suspect]
     Dosage: 20 UG, QD

REACTIONS (10)
  - MALAISE [None]
  - BURNING SENSATION [None]
  - RASH [None]
  - ERYTHEMA [None]
  - PRURITUS [None]
  - PAIN [None]
  - DYSPNOEA [None]
  - FEELING HOT [None]
  - MYALGIA [None]
  - ARTHRALGIA [None]
